FAERS Safety Report 7733669-4 (Version None)
Quarter: 2011Q3

REPORT INFORMATION
  Report Type: 
  Country: None (occurrence: None)
  Receive Date: 20110907
  Receipt Date: 20110902
  Transmission Date: 20111222
  Serious: Yes (Life-Threatening, Hospitalization, Other)
  Sender: FDA-Public Use
  Company Number: IT-JNJFOC-20110901659

PATIENT
  Sex: Female
  Weight: 55 kg

DRUGS (2)
  1. PALIPERIDONE [Suspect]
     Indication: SCHIZOPHRENIA
     Dates: start: 20110817
  2. PALIPERIDONE [Suspect]
     Dates: start: 20110810

REACTIONS (3)
  - RENAL FAILURE [None]
  - PSYCHOMOTOR RETARDATION [None]
  - MUSCLE RIGIDITY [None]
